FAERS Safety Report 6609689-X (Version None)
Quarter: 2010Q1

REPORT INFORMATION
  Report Type: 
  Country: None (occurrence: None)
  Receive Date: 20100302
  Receipt Date: 20100223
  Transmission Date: 20100710
  Serious: Yes (Hospitalization)
  Sender: FDA-Public Use
  Company Number: US-JNJFOC-20100300294

PATIENT
  Sex: Male
  Weight: 45.1 kg

DRUGS (5)
  1. INFLIXIMAB [Suspect]
     Indication: CROHN'S DISEASE
     Dosage: HAD A SINGLE DOSE
     Route: 042
  2. AZATHIOPRINE [Concomitant]
  3. WELLBUTRIN [Concomitant]
  4. INVEGA [Concomitant]
  5. DOXYCYCLINE [Concomitant]

REACTIONS (1)
  - DEPRESSION [None]
